FAERS Safety Report 4542513-8 (Version None)
Quarter: 2004Q4

REPORT INFORMATION
  Report Type: 
  Country: None (occurrence: None)
  Receive Date: 20041227
  Receipt Date: 20041215
  Transmission Date: 20050328
  Serious: Yes (Other)
  Sender: FDA-Public Use
  Company Number: 2004109234

PATIENT
  Sex: Female
  Weight: 57.1532 kg

DRUGS (12)
  1. ZYRTEC-D 12 HOUR [Suspect]
     Indication: HYPERSENSITIVITY
     Dosage: 10 MG/240 MG (2 IN 1 D), ORAL
     Route: 048
     Dates: start: 20040101, end: 20041210
  2. SALBUTAMOL (SALBUTAMOL) [Concomitant]
  3. TRIAMCINOLONE ACETONIDE [Concomitant]
  4. SUMATRIPTAN (SUMATRIPTAN) [Concomitant]
  5. GABAPENTIN [Concomitant]
  6. ASCORBIC ACID [Concomitant]
  7. OMEPRAZOLE [Concomitant]
  8. MULTIVITAMINS (ASCORBIC ACID/ERGOCALCIFEROL/FOLIC ACID/NICOTINAMIDE/PA [Concomitant]
  9. VICODIN [Concomitant]
  10. CYCLOBENZAPRINE HYDROCHLORIDE [Concomitant]
  11. BUSPIRONE HCL [Concomitant]
  12. ESCITALOPRAM (ESCITALOPRAM) [Concomitant]

REACTIONS (6)
  - DEVICE FAILURE [None]
  - DRUG ADDICT [None]
  - DRUG SCREEN POSITIVE [None]
  - FALSE POSITIVE LABORATORY RESULT [None]
  - INTERVERTEBRAL DISC PROTRUSION [None]
  - PAIN [None]
